FAERS Safety Report 16485053 (Version 1)
Quarter: 2019Q2

REPORT INFORMATION
  Report Type: Report from Study
  Country: US (occurrence: US)
  Receive Date: 20190627
  Receipt Date: 20190627
  Transmission Date: 20190711
  Serious: Yes (Hospitalization)
  Sender: FDA-Public Use
  Company Number: US-TESARO-2019-TSO02127-US

PATIENT
  Sex: Female
  Weight: 56 kg

DRUGS (3)
  1. ATIVAN [Concomitant]
     Active Substance: LORAZEPAM
     Indication: PRODUCT USED FOR UNKNOWN INDICATION
     Dosage: 0.5 MG, Q6H
  2. ZEJULA [Suspect]
     Active Substance: NIRAPARIB
     Indication: PRODUCT USED FOR UNKNOWN INDICATION
     Dosage: 1 CAPSULE BY MOUTH ONCE DAILY AT BEDTIME, WITH OR WITHOUT FOOD, AT THE SAME TIME EACH DAY
     Route: 048
     Dates: start: 20180506, end: 20190508
  3. HYDROCODONE [Concomitant]
     Active Substance: HYDROCODONE
     Indication: PRODUCT USED FOR UNKNOWN INDICATION
     Dosage: UNK, Q4H WHILE AWAKE

REACTIONS (2)
  - Respiratory disorder [Unknown]
  - Disease progression [Unknown]
